FAERS Safety Report 4347742-4 (Version None)
Quarter: 2004Q2

REPORT INFORMATION
  Report Type: 
  Country: None (occurrence: None)
  Receive Date: 20040426
  Receipt Date: 20040426
  Transmission Date: 20050107
  Serious: Yes (Life-Threatening, Hospitalization, Disabling)
  Sender: FDA-Public Use
  Company Number: None

PATIENT
  Age: 28 Year
  Sex: Female
  Weight: 49.8957 kg

DRUGS (1)
  1. THYMOGLOBULIN [Suspect]
     Dosage: 4 DOSES 1 WEEKEND INTRAVENOUS
     Route: 042
     Dates: start: 20021212, end: 20021216

REACTIONS (2)
  - MEDICATION ERROR [None]
  - URINARY BLADDER RUPTURE [None]
